FAERS Safety Report 11178126 (Version 1)
Quarter: 2015Q2

REPORT INFORMATION
  Report Type: Spontaneous
  Country: US (occurrence: None)
  Receive Date: 20150515
  Receipt Date: 20150515
  Transmission Date: 20150821
  Serious: Yes (Hospitalization, Other)
  Sender: FDA-Public Use
  Company Number: 2015000351

PATIENT
  Age: 66 Year
  Sex: Male
  Weight: 77.1 kg

DRUGS (15)
  1. PROZAC [Concomitant]
     Active Substance: FLUOXETINE HYDROCHLORIDE
  2. VITAMIN B12 (HYDROXOCOBALAMIN) [Concomitant]
  3. B 12 (CYANOCOBALAMIN) [Concomitant]
  4. CELEXA [Concomitant]
     Active Substance: CITALOPRAM HYDROBROMIDE
  5. TRAZODONE HCL (TRAZODONE HYDROCHLORIDE) [Concomitant]
  6. MULTIVITAMINS (ASCORBIC ACID, ERGOCALCIFEROL, FOLIC ACID, NICOTINAMIDE, PANTHENOL, RETINOL, RIBOFLAVIN, THIAMINE HYDROCHLORIDE) [Concomitant]
     Active Substance: VITAMINS
  7. CIMZIA [Suspect]
     Active Substance: CERTOLIZUMAB PEGOL
     Indication: CROHN^S DISEASE
     Dosage: ABOUT 13 DOSES RECEIVED
     Route: 058
     Dates: start: 2014, end: 201411
  8. VITAMINS (VITAMINS) [Concomitant]
  9. XALANTAN (LATANOPROST) EYE DROPS [Concomitant]
  10. CENTRUM SILVER [Concomitant]
     Active Substance: VITAMINS
  11. DILTIAZEM (DILTIAZEM HYDROCHLORIDE) (DILTIAZEM HYDROCHLORIDE) [Concomitant]
     Active Substance: DILTIAZEM
  12. CAPTOPRIL (CAPTOPRIL) [Concomitant]
  13. FOLIC ACID (FOLIC ACID) [Concomitant]
     Active Substance: FOLIC ACID
  14. LOMOTIL (ATROPINE SULFATE, DIPHENOXYLATE HYDROCHLORIDE) [Concomitant]
  15. PROTONIX [Concomitant]
     Active Substance: PANTOPRAZOLE SODIUM

REACTIONS (3)
  - Psoriasis [None]
  - Clostridium difficile infection [None]
  - Crohn^s disease [None]

NARRATIVE: CASE EVENT DATE: 2014
